FAERS Safety Report 15892992 (Version 1)
Quarter: 2019Q1

REPORT INFORMATION
  Report Type: Report from Study
  Country: US (occurrence: US)
  Receive Date: 20190130
  Receipt Date: 20190130
  Transmission Date: 20190417
  Serious: No
  Sender: FDA-Public Use
  Company Number: US-EXELIXIS-CABO-18017283

PATIENT
  Age: 64 Year
  Sex: Male

DRUGS (1)
  1. CABOMETYX [Suspect]
     Active Substance: CABOZANTINIB S-MALATE
     Indication: HEPATOCELLULAR CARCINOMA
     Dosage: 60 MG, QD (3 PM WITHOUT FOOD)
     Dates: start: 20181027, end: 20181109

REACTIONS (7)
  - Confusional state [Unknown]
  - Pain [Unknown]
  - Stomatitis [Unknown]
  - Off label use [Unknown]
  - Speech disorder [Unknown]
  - Erythema [Unknown]
  - Feeding disorder [Unknown]

NARRATIVE: CASE EVENT DATE: 2018
